FAERS Safety Report 18885155 (Version 1)
Quarter: 2021Q1

REPORT INFORMATION
  Report Type: Spontaneous
  Country: US (occurrence: US)
  Receive Date: 20210212
  Receipt Date: 20210212
  Transmission Date: 20210420
  Serious: Yes (Disabling)
  Sender: FDA-Public Use
  Company Number: None

PATIENT
  Age: 48 Year
  Sex: Female
  Weight: 90 kg

DRUGS (9)
  1. CYMBALTA [Concomitant]
     Active Substance: DULOXETINE HYDROCHLORIDE
  2. RHINOCORT [Concomitant]
     Active Substance: BUDESONIDE
  3. TROKENDI XR [Concomitant]
     Active Substance: TOPIRAMATE
  4. BUSPIRONE [Concomitant]
     Active Substance: BUSPIRONE HYDROCHLORIDE
  5. ABILIFY [Concomitant]
     Active Substance: ARIPIPRAZOLE
  6. MANUKA HONEY NASAL SPRAY [Suspect]
     Active Substance: HERBALS\HONEY
     Indication: SINUSITIS
     Dosage: ?          QUANTITY:1 SPRAY(S);?
  7. CLARINEX [Concomitant]
     Active Substance: DESLORATADINE
  8. FYCOMPA [Concomitant]
     Active Substance: PERAMPANEL
  9. AZELASTINE. [Concomitant]
     Active Substance: AZELASTINE HYDROCHLORIDE

REACTIONS (1)
  - Therapy non-responder [None]

NARRATIVE: CASE EVENT DATE: 20201027
